FAERS Safety Report 15605512 (Version 9)
Quarter: 2024Q1

REPORT INFORMATION
  Report Type: Spontaneous
  Country: FR (occurrence: FR)
  Receive Date: 20181112
  Receipt Date: 20240318
  Transmission Date: 20240410
  Serious: Yes (Life-Threatening, Hospitalization, Other)
  Sender: FDA-Public Use
  Company Number: FR-AUROBINDO-AUR-APL-2018-053681

PATIENT
  Age: 49 Year
  Sex: Male
  Weight: 103 kg

DRUGS (4)
  1. AMIODARONE [Suspect]
     Active Substance: AMIODARONE
     Indication: Product used for unknown indication
     Dosage: 6 GRAM, TOTAL
     Route: 048
  2. RIVAROXABAN [Interacting]
     Active Substance: RIVAROXABAN
     Indication: Anticoagulant therapy
     Dosage: 280 MILLIGRAM ONE TOTAL
     Route: 048
  3. RIVAROXABAN [Interacting]
     Active Substance: RIVAROXABAN
     Indication: Atrial fibrillation
  4. PROPRANOLOL [Suspect]
     Active Substance: PROPRANOLOL HYDROCHLORIDE
     Indication: Product used for unknown indication
     Dosage: 1.2 GRAM, TOTAL
     Route: 048

REACTIONS (15)
  - Hypovolaemic shock [Unknown]
  - Hypotension [Unknown]
  - Bradycardia [Unknown]
  - Suicide attempt [Unknown]
  - Intentional self-injury [Unknown]
  - Intentional product misuse [Unknown]
  - Intentional overdose [Unknown]
  - Poisoning deliberate [Recovered/Resolved]
  - Drug level increased [Recovered/Resolved]
  - Toxicity to various agents [Recovered/Resolved]
  - Overdose [Unknown]
  - Product use issue [Unknown]
  - Drug interaction [Unknown]
  - Off label use [Unknown]
  - Phlebotomy [Unknown]
